FAERS Safety Report 5124292-9 (Version None)
Quarter: 2006Q4

REPORT INFORMATION
  Report Type: 
  Country: None (occurrence: None)
  Receive Date: 20061010
  Receipt Date: 20061006
  Transmission Date: 20070319
  Serious: Yes (Hospitalization)
  Sender: FDA-Public Use
  Company Number: GB-ROXANE LABORATORIES, INC-2006-DE-05293GD

PATIENT
  Age: 45 Year
  Sex: Male

DRUGS (2)
  1. CALCIUM CARBONATE [Suspect]
     Indication: HYPERPHOSPHATAEMIA
  2. SEVELAMER [Suspect]
     Indication: HYPERPHOSPHATAEMIA

REACTIONS (12)
  - BLOOD ALKALINE PHOSPHATASE INCREASED [None]
  - BLOOD CALCIUM DECREASED [None]
  - BONE DENSITY DECREASED [None]
  - CALCINOSIS [None]
  - CALCIPHYLAXIS [None]
  - FEMUR FRACTURE [None]
  - GAIT DISTURBANCE [None]
  - MYOPATHY [None]
  - PAIN IN EXTREMITY [None]
  - PATELLA FRACTURE [None]
  - SKIN DISCOLOURATION [None]
  - SKIN ULCER [None]
